FAERS Safety Report 6398832-6 (Version None)
Quarter: 2009Q4

REPORT INFORMATION
  Report Type: 
  Country: None (occurrence: None)
  Receive Date: 20091013
  Receipt Date: 20090929
  Transmission Date: 20100525
  Serious: Yes (Other)
  Sender: FDA-Public Use
  Company Number: FR-MYLANLABS-2009S1017047

PATIENT
  Sex: Female

DRUGS (7)
  1. PREDNISONE [Suspect]
     Indication: DERMATOMYOSITIS
     Dosage: 1 MG/KG/DAY
  2. PREDNISONE [Suspect]
  3. PREDNISONE [Suspect]
  4. AZATHIOPRINE [Suspect]
     Indication: DERMATOMYOSITIS
     Dates: start: 20020101, end: 20070501
  5. SODIUM CALCIUM EDETATE [Suspect]
     Indication: CALCINOSIS
     Route: 058
     Dates: start: 20061101
  6. IMMUNE GLOBULIN NOS [Concomitant]
     Indication: DERMATOMYOSITIS
     Dosage: RECEIVED WEEKLY INFUSIONS
     Route: 041
  7. PAMIDRONIC ACID [Concomitant]
     Indication: CALCINOSIS
     Dosage: RECEIVED 6 MONTHLY INFUSIONS IN 2003 AND 2004

REACTIONS (3)
  - EPSTEIN-BARR VIRUS INFECTION [None]
  - LYMPHOPROLIFERATIVE DISORDER [None]
  - NECROSIS [None]
